FAERS Safety Report 10875035 (Version 2)
Quarter: 2015Q1

REPORT INFORMATION
  Report Type: Spontaneous
  Country: MX (occurrence: MX)
  Receive Date: 20150227
  Receipt Date: 20150303
  Transmission Date: 20150721
  Serious: Yes (Hospitalization)
  Sender: FDA-Public Use
  Company Number: MX-MUNDIPHARMA DS AND PHARMACOVIGILANCE-GBR-2015-0025899

PATIENT
  Sex: Female

DRUGS (2)
  1. SOLORO7 [Suspect]
     Active Substance: BUPRENORPHINE
     Indication: BONE NEOPLASM
     Dosage: 20 MG, UNK
     Route: 062
     Dates: start: 20150201
  2. SOLORO7 [Suspect]
     Active Substance: BUPRENORPHINE
     Dosage: 10 MG, UNK
     Route: 062
     Dates: start: 201411, end: 20150126

REACTIONS (1)
  - Blood calcium increased [Unknown]
